FAERS Safety Report 8127104-4 (Version None)
Quarter: 2011Q4

REPORT INFORMATION
  Report Type: 
  Country: None (occurrence: None)
  Receive Date: 20111227
  Receipt Date: 20110901
  Transmission Date: 20120403
  Serious: No
  Sender: FDA-Public Use
  Company Number: PHHY2011US13495

PATIENT
  Age: 46 Year
  Sex: Female
  Weight: 68.5 kg

DRUGS (2)
  1. GILENYA [Suspect]
     Indication: MULTIPLE SCLEROSIS
     Dosage: 0.5 MG, DAILY, ORAL; 0.5 MG, DAILY, ORAL
     Route: 048
     Dates: start: 20110215, end: 20110215
  2. GILENYA [Suspect]
     Indication: MULTIPLE SCLEROSIS
     Dosage: 0.5 MG, DAILY, ORAL; 0.5 MG, DAILY, ORAL
     Route: 048
     Dates: start: 20110613, end: 20110811

REACTIONS (2)
  - MUSCULOSKELETAL STIFFNESS [None]
  - VISUAL IMPAIRMENT [None]
